FAERS Safety Report 24600819 (Version 2)
Quarter: 2025Q1

REPORT INFORMATION
  Report Type: Spontaneous
  Country: US (occurrence: US)
  Receive Date: 20241110
  Receipt Date: 20250304
  Transmission Date: 20250408
  Serious: Yes (Hospitalization)
  Sender: SANOFI AVENTIS
  Company Number: US-SA-2024SA323892

PATIENT
  Sex: Male
  Weight: 154.55 kg

DRUGS (4)
  1. DUPIXENT [Suspect]
     Active Substance: DUPILUMAB
     Indication: Dermatitis atopic
     Dosage: 300 MG, QOW
     Route: 058
  2. LITHIUM CARBONATE [Concomitant]
     Active Substance: LITHIUM CARBONATE
  3. HALOPERIDOL [Concomitant]
     Active Substance: HALOPERIDOL
  4. LITHIUM CARBONATE [Concomitant]
     Active Substance: LITHIUM CARBONATE

REACTIONS (5)
  - Cardiac disorder [Unknown]
  - Sleep disorder due to a general medical condition [Unknown]
  - Panic attack [Unknown]
  - Complication associated with device [Unknown]
  - Erythema [Unknown]
